FAERS Safety Report 16323722 (Version 2)
Quarter: 2019Q2

REPORT INFORMATION
  Report Type: Report from Study
  Country: US (occurrence: US)
  Receive Date: 20190517
  Receipt Date: 20190610
  Transmission Date: 20190711
  Serious: Yes (Other)
  Sender: FDA-Public Use
  Company Number: US-ROCHE-2315809

PATIENT
  Age: 41 Year
  Sex: Female
  Weight: 90.8 kg

DRUGS (6)
  1. LYRICA [Concomitant]
     Active Substance: PREGABALIN
  2. OCREVUS [Suspect]
     Active Substance: OCRELIZUMAB
     Dosage: ONGOING :NO, SECOND HALF INFUSION
     Route: 042
     Dates: start: 20171227
  3. OCREVUS [Suspect]
     Active Substance: OCRELIZUMAB
     Dosage: ONGOING UNKNOWN
     Route: 042
     Dates: start: 201806
  4. OCREVUS [Suspect]
     Active Substance: OCRELIZUMAB
     Route: 042
     Dates: start: 20190501
  5. BOTOX [Concomitant]
     Active Substance: ONABOTULINUMTOXINA
     Route: 065
  6. OCREVUS [Suspect]
     Active Substance: OCRELIZUMAB
     Indication: RELAPSING-REMITTING MULTIPLE SCLEROSIS
     Dosage: FIRST HALF INFUSION,ONGOING NO
     Route: 042
     Dates: start: 20171213

REACTIONS (7)
  - Alopecia [Recovered/Resolved]
  - Stomatitis [Recovered/Resolved]
  - Headache [Unknown]
  - Weight increased [Unknown]
  - Feeling abnormal [Unknown]
  - Cheilitis [Recovered/Resolved]
  - Multiple sclerosis relapse [Not Recovered/Not Resolved]

NARRATIVE: CASE EVENT DATE: 20171213
